FAERS Safety Report 23398846 (Version 2)
Quarter: 2024Q2

REPORT INFORMATION
  Report Type: Spontaneous
  Country: US (occurrence: US)
  Receive Date: 20240112
  Receipt Date: 20240402
  Transmission Date: 20240716
  Serious: Yes (Other)
  Sender: FDA-Public Use
  Company Number: US-PHARMING-PHAUS2024000050

PATIENT

DRUGS (2)
  1. RUCONEST [Suspect]
     Active Substance: CONESTAT ALFA
     Indication: Hereditary angioedema
     Dosage: 4200 IU, EVERY WEEK AND AS NEEDED
     Route: 042
     Dates: start: 202309
  2. RUCONEST [Suspect]
     Active Substance: CONESTAT ALFA
     Dosage: 4200 IU, ONCE WEEKLY AND AS NEEDED. NO MORE THAT TWO DOSES WITH 24-HOUR PERIOD
     Route: 042
     Dates: start: 20230912

REACTIONS (6)
  - Systemic lupus erythematosus [Unknown]
  - Osteonecrosis [Unknown]
  - Vascular access site complication [Unknown]
  - Product dose omission issue [Unknown]
  - Weight fluctuation [Unknown]
  - Intentional product use issue [Unknown]
